FAERS Safety Report 8585211-6 (Version None)
Quarter: 2012Q3

REPORT INFORMATION
  Report Type: 
  Country: None (occurrence: None)
  Receive Date: 20120810
  Receipt Date: 20120807
  Transmission Date: 20120928
  Serious: Yes (Hospitalization, Other)
  Sender: FDA-Public Use
  Company Number: PHHY2012BO056719

PATIENT
  Sex: Male

DRUGS (5)
  1. IMATINIB MESYLATE [Suspect]
     Indication: CHRONIC MYELOID LEUKAEMIA
     Dosage: 400 MG, DAILY
     Route: 048
     Dates: start: 20100301
  2. HYDROXYUREA [Concomitant]
     Dosage: 3MG DAILY
  3. INTERFERON [Concomitant]
  4. IMATINIB MESYLATE [Suspect]
     Dosage: UNK UKN, UNK
  5. IMATINIB MESYLATE [Suspect]
     Dosage: 800 MG, DAILY

REACTIONS (3)
  - TUMOUR LYSIS SYNDROME [None]
  - MYOCARDIAL ISCHAEMIA [None]
  - LEUKOCYTOSIS [None]
